FAERS Safety Report 11839764 (Version 2)
Quarter: 2015Q4

REPORT INFORMATION
  Report Type: Spontaneous
  Country: IT (occurrence: IT)
  Receive Date: 20151216
  Receipt Date: 20151231
  Transmission Date: 20160305
  Serious: Yes (Other)
  Sender: FDA-Public Use
  Company Number: IT-ROCHE-1678343

PATIENT
  Age: 40 Year
  Sex: Female

DRUGS (1)
  1. ACTILYSE [Suspect]
     Active Substance: ALTEPLASE
     Indication: ISCHAEMIC STROKE
     Dosage: 130 MIN FROM SYMPTOM ONSET FOR ISCHAEMIC STROKE
     Route: 042

REACTIONS (1)
  - Paradoxical embolism [Unknown]
